FAERS Safety Report 4927770-8 (Version None)
Quarter: 2006Q1

REPORT INFORMATION
  Report Type: 
  Country: None (occurrence: None)
  Receive Date: 20060222
  Receipt Date: 20060209
  Transmission Date: 20060701
  Serious: Yes (Hospitalization)
  Sender: FDA-Public Use
  Company Number: 006622

PATIENT
  Age: 77 Year
  Sex: Female
  Weight: 52.6 kg

DRUGS (7)
  1. WARFARIN SODIUM [Suspect]
     Dosage: ORAL; SEE IMAGE
     Route: 048
     Dates: start: 20010101, end: 20051101
  2. WARFARIN SODIUM [Suspect]
     Dosage: ORAL; SEE IMAGE
     Route: 048
     Dates: start: 20060101, end: 20060101
  3. JANTOVEN(WARFARIN SODIUM) [Suspect]
     Indication: ATRIAL FIBRILLATION
     Dosage: ORAL; SEE IMAGE
     Route: 048
     Dates: start: 20051101, end: 20060101
  4. JANTOVEN(WARFARIN SODIUM) [Suspect]
     Indication: ATRIAL FIBRILLATION
     Dosage: ORAL; SEE IMAGE
     Route: 048
     Dates: start: 20060101
  5. JANTOVEN(WARFARIN SODIUM) [Suspect]
     Indication: ATRIAL FIBRILLATION
     Dosage: ORAL; SEE IMAGE
     Route: 048
     Dates: start: 20060101
  6. DIGOXIN [Concomitant]
  7. FOSAMAX ONCE WEEKLY [Concomitant]

REACTIONS (3)
  - FALL [None]
  - INTERNATIONAL NORMALISED RATIO FLUCTUATION [None]
  - PELVIC FRACTURE [None]
